FAERS Safety Report 20124759 (Version 1)
Quarter: 2021Q4

REPORT INFORMATION
  Report Type: Spontaneous
  Country: US (occurrence: None)
  Receive Date: 20211126
  Receipt Date: 20211126
  Transmission Date: 20220303
  Serious: Yes (Hospitalization)
  Sender: FDA-Public Use
  Company Number: None

PATIENT
  Age: 69 Year
  Sex: Male
  Weight: 109 kg

DRUGS (1)
  1. EMPAGLIFLOZIN [Suspect]
     Active Substance: EMPAGLIFLOZIN
     Indication: Diabetes mellitus
     Dosage: FREQUENCY : DAILY;?
     Route: 048
     Dates: start: 20210802, end: 20210909

REACTIONS (6)
  - Penile prosthesis insertion [None]
  - Genitourinary tract infection [None]
  - Device related infection [None]
  - Kidney infection [None]
  - Penile prosthesis removal [None]
  - Acute kidney injury [None]

NARRATIVE: CASE EVENT DATE: 20210909
